FAERS Safety Report 18332441 (Version 1)
Quarter: 2020Q3

REPORT INFORMATION
  Report Type: Spontaneous
  Country: US (occurrence: US)
  Receive Date: 20200930
  Receipt Date: 20200930
  Transmission Date: 20201103
  Serious: No
  Sender: FDA-Public Use
  Company Number: US-EISAI MEDICAL RESEARCH-EC-2020-081128

PATIENT
  Sex: Female

DRUGS (2)
  1. LENVIMA [Suspect]
     Active Substance: LENVATINIB
     Indication: UTERINE CANCER
     Dosage: DOSAGE AND FREQUENCY UNKNOWN
     Route: 048
  2. PEMBROLIZUMAB. [Concomitant]
     Active Substance: PEMBROLIZUMAB
     Indication: UTERINE CANCER
     Dosage: DOSAGE AND FREQUENCY UNKNOWN

REACTIONS (1)
  - White blood cell count decreased [Unknown]
